FAERS Safety Report 19395930 (Version 3)
Quarter: 2022Q2

REPORT INFORMATION
  Report Type: Report from Study
  Country: ES (occurrence: ES)
  Receive Date: 20210609
  Receipt Date: 20220627
  Transmission Date: 20220721
  Serious: Yes (Hospitalization)
  Sender: FDA-Public Use
  Company Number: ES-TAKEDA-2021TUS035902

PATIENT
  Age: 1 Year
  Sex: Male

DRUGS (8)
  1. TEDUGLUTIDE [Suspect]
     Active Substance: TEDUGLUTIDE
     Indication: Short-bowel syndrome
     Dosage: 0.04 MILLIGRAM/KILOGRAM, QD
     Route: 042
     Dates: start: 20201119, end: 20210729
  2. TEDUGLUTIDE [Suspect]
     Active Substance: TEDUGLUTIDE
     Indication: Short-bowel syndrome
     Dosage: 0.04 MILLIGRAM/KILOGRAM, QD
     Route: 042
     Dates: start: 20201119, end: 20210729
  3. TEDUGLUTIDE [Suspect]
     Active Substance: TEDUGLUTIDE
     Indication: Short-bowel syndrome
     Dosage: 0.04 MILLIGRAM/KILOGRAM, QD
     Route: 042
     Dates: start: 20201119, end: 20210729
  4. TEDUGLUTIDE [Suspect]
     Active Substance: TEDUGLUTIDE
     Indication: Short-bowel syndrome
     Dosage: 0.04 MILLIGRAM/KILOGRAM, QD
     Route: 042
     Dates: start: 20201119, end: 20210729
  5. MORPHINE [Concomitant]
     Active Substance: MORPHINE
     Indication: Pain
     Dosage: 0.4 MILLIGRAM, TID
     Route: 048
     Dates: start: 20201217
  6. CHLORPROMAZINE [Concomitant]
     Active Substance: CHLORPROMAZINE
     Indication: Palliative care
     Dosage: 8 MILLIGRAM, TID
     Route: 048
  7. VITAMIN K [Concomitant]
     Active Substance: PHYTONADIONE
     Dosage: 2.5 MILLIGRAM, QD
     Route: 042
  8. OMEPRAZOLE [Concomitant]
     Active Substance: OMEPRAZOLE
     Indication: Gastric disorder
     Dosage: 6 MILLIGRAM, QD
     Route: 048

REACTIONS (3)
  - Metabolic acidosis [Recovered/Resolved]
  - Diarrhoea [Recovered/Resolved]
  - Device breakage [Recovered/Resolved]

NARRATIVE: CASE EVENT DATE: 20201202
